FAERS Safety Report 7013623-0 (Version None)
Quarter: 2010Q3

REPORT INFORMATION
  Report Type: 
  Country: None (occurrence: None)
  Receive Date: 20100924
  Receipt Date: 20100909
  Transmission Date: 20110219
  Serious: Yes (Hospitalization, Other)
  Sender: FDA-Public Use
  Company Number: AU-GENENTECH-305494

PATIENT
  Sex: Female

DRUGS (2)
  1. LUCENTIS [Suspect]
     Indication: MACULAR DEGENERATION
     Dosage: 0.05 ML, UNK
     Route: 031
     Dates: start: 20090601
  2. LUCENTIS [Suspect]
     Dosage: UNK
     Dates: start: 20091201

REACTIONS (4)
  - DEPRESSION [None]
  - FALL [None]
  - MYOCARDIAL INFARCTION [None]
  - RETINAL HAEMORRHAGE [None]
